FAERS Safety Report 21094418 (Version 1)
Quarter: 2022Q3

REPORT INFORMATION
  Report Type: Spontaneous
  Country: GB (occurrence: GB)
  Receive Date: 20220718
  Receipt Date: 20220718
  Transmission Date: 20221027
  Serious: Yes (Hospitalization)
  Sender: FDA-Public Use
  Company Number: None

PATIENT
  Sex: Female

DRUGS (1)
  1. PAXLOVID [Suspect]
     Active Substance: NIRMATRELVIR\RITONAVIR
     Indication: Coronavirus infection
     Dosage: [PF-07321332 150 MG]/[RITONAVIR 100 MG], DAILY
     Dates: start: 20220414, end: 20220416

REACTIONS (7)
  - Throat tightness [Recovered/Resolved]
  - Rash pruritic [Unknown]
  - Pruritus [Unknown]
  - Erythema [Unknown]
  - Rash macular [Unknown]
  - Burning sensation [Unknown]
  - Stevens-Johnson syndrome [Unknown]

NARRATIVE: CASE EVENT DATE: 20220416
